FAERS Safety Report 9133228 (Version 3)
Quarter: 2013Q2

REPORT INFORMATION
  Report Type: Spontaneous
  Country: JP (occurrence: JP)
  Receive Date: 20130301
  Receipt Date: 20130520
  Transmission Date: 20140414
  Serious: Yes (Other)
  Sender: FDA-Public Use
  Company Number: JP-ROCHE-1195261

PATIENT
  Age: 76 Year
  Sex: Female
  Weight: 63 kg

DRUGS (10)
  1. TAMIFLU [Suspect]
     Indication: INFLUENZA
     Route: 048
     Dates: start: 20130124, end: 20130124
  2. TAMIFLU [Suspect]
     Indication: PYREXIA
  3. TRANSAMIN [Concomitant]
     Dosage: DOSAGE IS UNCERTAIN
     Route: 048
  4. HUSCODE [Concomitant]
     Dosage: DOSAGE IS UNCERTAIN
     Route: 048
  5. PRAVASTATIN SODIUM [Concomitant]
     Dosage: DOSAGE IS UNCERTAIN
     Route: 048
  6. AMLODIPINE [Concomitant]
     Dosage: DOSAGE IS UNCERTAIN
     Route: 048
  7. BAYASPIRIN [Concomitant]
     Dosage: DOSAGE IS UNCERTAIN.
     Route: 048
  8. GLIMEPIRIDE [Concomitant]
     Dosage: DOSAGE IS UNCERTAIN
     Route: 048
  9. ETHYL ICOSAPENTATE [Concomitant]
     Dosage: DOSAGE IS UNCERTAIN
     Route: 048
  10. JANUVIA [Concomitant]
     Dosage: DOSAGE IS UNCERTAIN
     Route: 048

REACTIONS (2)
  - Tremor [Recovered/Resolved]
  - Feeling abnormal [Unknown]
